FAERS Safety Report 4416316-9 (Version None)
Quarter: 2004Q3

REPORT INFORMATION
  Report Type: 
  Country: None (occurrence: None)
  Receive Date: 20040805
  Receipt Date: 20040729
  Transmission Date: 20050211
  Serious: Yes (Hospitalization, Other)
  Sender: FDA-Public Use
  Company Number: PHHO2004JP10871

PATIENT
  Age: 51 Year
  Sex: Male
  Weight: 50 kg

DRUGS (3)
  1. DIOVAN [Suspect]
     Indication: HYPERTENSION
     Dosage: 80 MG, QD
     Route: 048
     Dates: start: 20030723, end: 20040415
  2. 8-HOUR BAYER [Suspect]
     Dosage: 100 MG, QD
     Route: 048
     Dates: start: 20030723, end: 20040415
  3. NORVASC [Concomitant]
     Dosage: 5 MG
     Route: 048
     Dates: start: 20040108, end: 20040415

REACTIONS (3)
  - CEREBRAL HAEMORRHAGE [None]
  - DEPRESSED LEVEL OF CONSCIOUSNESS [None]
  - DYSARTHRIA [None]
